FAERS Safety Report 9075446 (Version 1)
Quarter: 2013Q1

REPORT INFORMATION
  Report Type: Report from Study
  Country: US (occurrence: US)
  Receive Date: 20130129
  Receipt Date: 20130129
  Transmission Date: 20140127
  Serious: No
  Sender: FDA-Public Use
  Company Number: US-ABBOTT-12P-163-0936946-00

PATIENT
  Age: 54 Year
  Sex: Male

DRUGS (3)
  1. HUMIRA 40 MG/0.8 ML PEN [Suspect]
     Indication: RHEUMATOID ARTHRITIS
     Dosage: DISCONTINUED
     Route: 058
     Dates: start: 20120319, end: 20120516
  2. FOLIC ACID [Concomitant]
     Indication: FEELING HOT
  3. METHOTREXATE [Concomitant]
     Indication: PRODUCT USED FOR UNKNOWN INDICATION
     Dosage: 8 TABLETS PER WEEK

REACTIONS (6)
  - Local swelling [Not Recovered/Not Resolved]
  - Drug ineffective [Not Recovered/Not Resolved]
  - Local swelling [Unknown]
  - Feeling hot [Not Recovered/Not Resolved]
  - Neck mass [Not Recovered/Not Resolved]
  - Neck mass [Not Recovered/Not Resolved]
